FAERS Safety Report 8176994-8 (Version None)
Quarter: 2012Q1

REPORT INFORMATION
  Report Type: 
  Country: None (occurrence: None)
  Receive Date: 20120301
  Receipt Date: 20120215
  Transmission Date: 20120608
  Serious: Yes (Hospitalization, Other)
  Sender: FDA-Public Use
  Company Number: US-BAYER-201039797NA

PATIENT
  Age: 24 Year
  Sex: Female
  Weight: 63.492 kg

DRUGS (6)
  1. YAZ [Suspect]
     Indication: CONTRACEPTION
     Dosage: UNK UNK, QD
     Route: 048
     Dates: start: 20090701, end: 20090801
  2. MIDOL LIQUID GELS [Concomitant]
     Dosage: UNK
     Route: 048
     Dates: start: 20081104, end: 20090707
  3. PRILOSEC [Concomitant]
     Indication: GASTROOESOPHAGEAL REFLUX DISEASE
     Dosage: UNK UNK, QD
     Dates: start: 20030101
  4. TRAMADOL HCL [Concomitant]
     Indication: PAIN
     Dosage: 50 MG, UNK
     Route: 048
     Dates: start: 20081101, end: 20090601
  5. ALEVE (CAPLET) [Concomitant]
     Dosage: 220 MG, UNK
     Route: 048
     Dates: start: 20081104, end: 20090717
  6. COLACE [Concomitant]
     Dosage: UNK
     Dates: start: 20090717

REACTIONS (3)
  - DEEP VEIN THROMBOSIS [None]
  - ANXIETY [None]
  - PAIN [None]
